FAERS Safety Report 6321805-6 (Version None)
Quarter: 2009Q3

REPORT INFORMATION
  Report Type: 
  Country: None (occurrence: None)
  Receive Date: 20090824
  Receipt Date: 20090819
  Transmission Date: 20100115
  Serious: Yes (Hospitalization)
  Sender: FDA-Public Use
  Company Number: AU-BRISTOL-MYERS SQUIBB COMPANY-14748578

PATIENT
  Age: 45 Year
  Sex: Male
  Weight: 67 kg

DRUGS (5)
  1. ARIPIPRAZOLE [Suspect]
     Indication: SCHIZOPHRENIA
     Dates: start: 20071015, end: 20080215
  2. ATORVASTATIN [Concomitant]
     Dates: start: 20071015
  3. CHLORPROMAZINE HCL [Concomitant]
     Dates: start: 20071015
  4. FLUPHENAZINE DECANOATE [Concomitant]
     Dates: start: 20071015
  5. OLANZAPINE [Concomitant]
     Dates: start: 20071015

REACTIONS (4)
  - HALLUCINATION, AUDITORY [None]
  - INTENTIONAL DRUG MISUSE [None]
  - MANIA [None]
  - PARANOIA [None]
